FAERS Safety Report 5564545-3 (Version None)
Quarter: 2007Q4

REPORT INFORMATION
  Report Type: 
  Country: None (occurrence: None)
  Receive Date: 20071218
  Receipt Date: 20071218
  Transmission Date: 20080405
  Serious: Yes (Hospitalization)
  Sender: FDA-Public Use
  Company Number: PHHO2003DK09503

PATIENT
  Age: 88 Year
  Sex: Female
  Weight: 58.7 kg

DRUGS (4)
  1. VITAMIN D [Concomitant]
     Indication: OSTEOPOROTIC FRACTURE
     Dosage: 400 IU, BID
     Route: 048
  2. CALCIUM CARBONATE [Concomitant]
     Indication: OSTEOPOROTIC FRACTURE
     Dosage: 500 MG, BID
     Route: 048
  3. ZOLEDRONIC ACID [Suspect]
     Indication: OSTEOPOROTIC FRACTURE
     Dosage: DOUBLE BLIND
     Route: 042
     Dates: start: 20030527
  4. ZOLEDRONIC ACID [Suspect]
     Dosage: 5MG, ONCE YEARLY

REACTIONS (4)
  - DISEASE PROGRESSION [None]
  - INTERNAL FIXATION OF FRACTURE [None]
  - OSTEONECROSIS [None]
  - OSTEOSYNTHESIS [None]
